FAERS Safety Report 10691996 (Version 1)
Quarter: 2015Q1

REPORT INFORMATION
  Report Type: Report from Study
  Country: IE (occurrence: IE)
  Receive Date: 20150106
  Receipt Date: 20150106
  Transmission Date: 20150720
  Serious: Yes (Death)
  Sender: FDA-Public Use
  Company Number: IE-AMGEN-IRLSL2015000050

PATIENT
  Age: 57 Year
  Sex: Male

DRUGS (7)
  1. OPATANOL [Concomitant]
     Active Substance: OLOPATADINE
  2. LOCERYL [Concomitant]
     Active Substance: AMOROLFINE HYDROCHLORIDE
  3. ONE ALPHA [Concomitant]
     Active Substance: ALFACALCIDOL
  4. FOLIC ACID. [Concomitant]
     Active Substance: FOLIC ACID
  5. ALLOPURINOL. [Concomitant]
     Active Substance: ALLOPURINOL
  6. ARANESP [Suspect]
     Active Substance: DARBEPOETIN ALFA
     Indication: CHRONIC KIDNEY DISEASE
     Dosage: 40 MUG,
     Route: 058
     Dates: start: 20130321
  7. OMEPRAZOLE. [Concomitant]
     Active Substance: OMEPRAZOLE

REACTIONS (1)
  - Death [Fatal]

NARRATIVE: CASE EVENT DATE: 20140731
